FAERS Safety Report 7992823-7 (Version None)
Quarter: 2011Q4

REPORT INFORMATION
  Report Type: 
  Country: None (occurrence: None)
  Receive Date: 20111219
  Receipt Date: 20110928
  Transmission Date: 20120403
  Serious: No
  Sender: FDA-Public Use
  Company Number: US-ASTRAZENECA-2011SE58650

PATIENT
  Age: 82 Year
  Sex: Male

DRUGS (5)
  1. FENOFIBRATE [Concomitant]
  2. ZETIA [Concomitant]
  3. NIACIN [Concomitant]
  4. CRESTOR [Suspect]
     Route: 048
  5. FISH OIL [Concomitant]

REACTIONS (3)
  - CORONARY ARTERY DISEASE [None]
  - CARDIOMYOPATHY [None]
  - LIPIDS INCREASED [None]
